FAERS Safety Report 22124582 (Version 1)
Quarter: 2023Q1

REPORT INFORMATION
  Report Type: Spontaneous
  Country: None (occurrence: CA)
  Receive Date: 20230322
  Receipt Date: 20230322
  Transmission Date: 20230418
  Serious: No
  Sender: FDA-Public Use
  Company Number: CA-Hill Dermaceuticals, Inc.-2139351

PATIENT
  Age: 61 Year
  Sex: Female

DRUGS (2)
  1. DERMA-SMOOTHE/FS [Suspect]
     Active Substance: FLUOCINOLONE ACETONIDE
     Indication: Hand dermatitis
     Route: 061
     Dates: start: 20220209, end: 20220209
  2. TYLENOL WITH CODEINE [Concomitant]
     Active Substance: ACETAMINOPHEN\CODEINE PHOSPHATE
     Dates: start: 2005

REACTIONS (4)
  - Dry skin [None]
  - Application site erythema [None]
  - Application site pruritus [None]
  - Urticaria [None]

NARRATIVE: CASE EVENT DATE: 20220209
